FAERS Safety Report 16163749 (Version 2)
Quarter: 2019Q2

REPORT INFORMATION
  Report Type: Report from Study
  Country: US (occurrence: US)
  Receive Date: 20190405
  Receipt Date: 20190429
  Transmission Date: 20190711
  Serious: Yes (Other)
  Sender: FDA-Public Use
  Company Number: US-ASTELLAS-2019US008930

PATIENT
  Sex: Male

DRUGS (1)
  1. ENZALUTAMIDE [Suspect]
     Active Substance: ENZALUTAMIDE
     Indication: PROSTATE CANCER
     Route: 048
     Dates: start: 20190201

REACTIONS (5)
  - Malignant neoplasm progression [Unknown]
  - Decreased appetite [Unknown]
  - Anaemia [Unknown]
  - Arthralgia [Unknown]
  - Asthenia [Unknown]
